FAERS Safety Report 14576068 (Version 1)
Quarter: 2018Q1

REPORT INFORMATION
  Report Type: Spontaneous
  Country: DE (occurrence: DE)
  Receive Date: 20180227
  Receipt Date: 20180227
  Transmission Date: 20180509
  Serious: Yes (Death)
  Sender: FDA-Public Use
  Company Number: DE-009507513-1802DEU011647

PATIENT
  Age: 81 Year
  Sex: Female

DRUGS (1)
  1. KEYTRUDA [Suspect]
     Active Substance: PEMBROLIZUMAB
     Indication: NON-SMALL CELL LUNG CANCER
     Dosage: 200 MG, UNK
     Route: 042
     Dates: start: 20170925

REACTIONS (5)
  - Malnutrition [Fatal]
  - Cholestasis [Fatal]
  - Pleural effusion [Fatal]
  - Encephalitis [Fatal]
  - Faecaloma [Fatal]
